FAERS Safety Report 9202765 (Version 1)
Quarter: 2013Q2

REPORT INFORMATION
  Report Type: Report from Study
  Country: DE (occurrence: DE)
  Receive Date: 20130401
  Receipt Date: 20130401
  Transmission Date: 20140414
  Serious: Yes (Hospitalization)
  Sender: FDA-Public Use
  Company Number: DE-ABBOTT-13P-062-1069236-00

PATIENT
  Sex: Male
  Weight: 98 kg

DRUGS (4)
  1. HUMIRA [Suspect]
     Indication: PSORIASIS
     Route: 058
     Dates: start: 20081117
  2. METFORMIN 1000 [Concomitant]
     Indication: PRODUCT USED FOR UNKNOWN INDICATION
  3. ACETYLSALICYLIC ACID [Concomitant]
     Indication: PRODUCT USED FOR UNKNOWN INDICATION
  4. PLAVIX [Concomitant]
     Indication: PRODUCT USED FOR UNKNOWN INDICATION

REACTIONS (4)
  - Mental status changes postoperative [Unknown]
  - Peripheral arterial occlusive disease [Unknown]
  - Post procedural haematoma [Unknown]
  - Delirium [Unknown]
